FAERS Safety Report 6113198-4 (Version None)
Quarter: 2009Q1

REPORT INFORMATION
  Report Type: 
  Country: None (occurrence: None)
  Receive Date: 20090312
  Receipt Date: 20090309
  Transmission Date: 20090719
  Serious: No
  Sender: FDA-Public Use
  Company Number: US-JNJFOC-20090302346

PATIENT
  Sex: Female
  Weight: 101.61 kg

DRUGS (9)
  1. DURAGESIC-100 [Suspect]
     Route: 062
  2. DURAGESIC-100 [Suspect]
     Indication: BACK PAIN
     Route: 062
  3. OXYCODONE HCL [Concomitant]
     Indication: PAIN
     Dosage: 10/325MG 4 TIMES A DAY
     Route: 048
  4. PREVACID [Concomitant]
     Indication: DYSPEPSIA
     Route: 048
  5. SINGULAIR [Concomitant]
     Indication: MULTIPLE ALLERGIES
     Route: 048
  6. ALLEGRA [Concomitant]
     Indication: MULTIPLE ALLERGIES
     Dosage: UNKNOWN MG
     Route: 048
  7. SYNTHROID [Concomitant]
     Indication: THYROID DISORDER
     Route: 048
  8. ADDERALL 10 [Concomitant]
     Indication: ATTENTION DEFICIT/HYPERACTIVITY DISORDER
     Route: 048
  9. WELLBUTRIN [Concomitant]
     Indication: DEPRESSION
     Route: 048

REACTIONS (4)
  - DRUG TOLERANCE [None]
  - INAPPROPRIATE SCHEDULE OF DRUG ADMINISTRATION [None]
  - NIGHT SWEATS [None]
  - OEDEMA PERIPHERAL [None]
